FAERS Safety Report 9781074 (Version 2)
Quarter: 2013Q4

REPORT INFORMATION
  Report Type: Report from Study
  Country: DE (occurrence: DE)
  Receive Date: 20131224
  Receipt Date: 20131224
  Transmission Date: 20140711
  Serious: Yes (Death, Life-Threatening)
  Sender: FDA-Public Use
  Company Number: DE-CELGENEUS-062-50794-13115526

PATIENT
  Age: 66 Year
  Sex: Male
  Weight: 78 kg

DRUGS (9)
  1. VIDAZA [Suspect]
     Indication: ACUTE MYELOID LEUKAEMIA
     Route: 041
     Dates: start: 20110223, end: 20110301
  2. VIDAZA [Suspect]
     Route: 041
     Dates: start: 20110401, end: 20110407
  3. VIDAZA [Suspect]
     Route: 041
     Dates: start: 20110507, end: 20110513
  4. VIDAZA [Suspect]
     Route: 041
     Dates: start: 20110605, end: 20110615
  5. VIDAZA [Suspect]
     Route: 041
     Dates: start: 20110713, end: 20110719
  6. VIDAZA [Suspect]
     Route: 041
     Dates: start: 20110809, end: 20110815
  7. TORASEMIDE [Concomitant]
     Indication: PRODUCT USED FOR UNKNOWN INDICATION
     Route: 065
  8. AMPHOTERICIN B [Concomitant]
     Indication: PRODUCT USED FOR UNKNOWN INDICATION
     Route: 065
  9. OMEPRAZOLE [Concomitant]
     Indication: PRODUCT USED FOR UNKNOWN INDICATION
     Route: 065

REACTIONS (1)
  - Acute myeloid leukaemia [Fatal]
